FAERS Safety Report 9134947 (Version 1)
Quarter: 2013Q1

REPORT INFORMATION
  Report Type: Spontaneous
  Country: US (occurrence: US)
  Receive Date: 20130304
  Receipt Date: 20130304
  Transmission Date: 20140127
  Serious: No
  Sender: FDA-Public Use
  Company Number: US-BAYER-2013-019589

PATIENT
  Age: 56 Year
  Sex: Male

DRUGS (5)
  1. STAXYN (FDT/ODT) [Suspect]
     Indication: LIBIDO DECREASED
     Dosage: 1 DF, ONCE
     Route: 048
     Dates: start: 20130211, end: 20130211
  2. WARFARIN [Concomitant]
  3. UNKNOWN CHOLESTEROL MEDICATION [Concomitant]
  4. VITAMIN D [Concomitant]
  5. FISH OIL [Concomitant]

REACTIONS (4)
  - Headache [Recovered/Resolved]
  - Flushing [Recovered/Resolved]
  - Nasal congestion [Recovered/Resolved]
  - Dyspepsia [Recovered/Resolved]
